FAERS Safety Report 24194113 (Version 1)
Quarter: 2024Q3

REPORT INFORMATION
  Report Type: Spontaneous
  Country: FR (occurrence: FR)
  Receive Date: 20240809
  Receipt Date: 20240809
  Transmission Date: 20241017
  Serious: Yes (Hospitalization)
  Sender: TEVA
  Company Number: None

PATIENT
  Age: 18 Year
  Sex: Male
  Weight: 66 kg

DRUGS (4)
  1. DOXORUBICIN [Suspect]
     Active Substance: DOXORUBICIN
     Indication: Hodgkin^s disease
     Dosage: TIME INTERVAL: TOTAL: CHLORHYDRATE DE DOXORUBICINE
     Route: 042
     Dates: start: 20240701, end: 20240715
  2. DACARBAZINE [Suspect]
     Active Substance: DACARBAZINE
     Indication: Hodgkin^s disease
     Dosage: TIME INTERVAL: TOTAL
     Route: 042
     Dates: start: 20240701, end: 20240715
  3. VINBLASTINE SULFATE [Suspect]
     Active Substance: VINBLASTINE SULFATE
     Indication: Hodgkin^s disease
     Dosage: TIME INTERVAL: TOTAL: VINBLASTINE (SULFATE DE)
     Route: 042
     Dates: start: 20240701, end: 20240715
  4. BLEOMYCIN SULFATE [Suspect]
     Active Substance: BLEOMYCIN SULFATE
     Indication: Hodgkin^s disease
     Dosage: TIME INTERVAL: TOTAL: BLEOMYCINE (SULFATE DE)
     Route: 042
     Dates: start: 20240701, end: 20240715

REACTIONS (3)
  - Headache [Recovering/Resolving]
  - Congenital aplasia [Recovering/Resolving]
  - Pyrexia [Recovering/Resolving]

NARRATIVE: CASE EVENT DATE: 20240701
